FAERS Safety Report 9839105 (Version 1)
Quarter: 2014Q1

REPORT INFORMATION
  Report Type: Report from Study
  Country: ES (occurrence: ES)
  Receive Date: 20140123
  Receipt Date: 20140123
  Transmission Date: 20141002
  Serious: Yes (Hospitalization)
  Sender: FDA-Public Use
  Company Number: ES-MERCK-1401ESP004849

PATIENT
  Age: 45 Year
  Sex: Male

DRUGS (2)
  1. PEGINTRON [Suspect]
     Indication: HEPATITIS C
     Dosage: 150 MICROGRAM, QW
     Route: 065
     Dates: start: 20130607, end: 20130705
  2. RIBAVIRIN [Interacting]
     Indication: HEPATITIS C
     Route: 048
     Dates: start: 20130607, end: 20130705

REACTIONS (4)
  - Pancytopenia [Recovering/Resolving]
  - Renal failure [Recovering/Resolving]
  - Anaemia [Recovering/Resolving]
  - Thrombocytopenia [Recovering/Resolving]
